FAERS Safety Report 5830471-5 (Version None)
Quarter: 2008Q3

REPORT INFORMATION
  Report Type: 
  Country: None (occurrence: None)
  Receive Date: 20080801
  Receipt Date: 20070601
  Transmission Date: 20090109
  Serious: No
  Sender: FDA-Public Use
  Company Number: US-BRISTOL-MYERS SQUIBB COMPANY-13800677

PATIENT
  Age: 83 Year
  Sex: Female
  Weight: 58 kg

DRUGS (4)
  1. COUMADIN [Suspect]
     Indication: ATRIAL FIBRILLATION
  2. TOPROL-XL [Concomitant]
  3. SYNTHROID [Concomitant]
  4. ACCUPRIL [Concomitant]

REACTIONS (2)
  - HAEMORRHAGE [None]
  - RASH MACULAR [None]
